FAERS Safety Report 6743526-8 (Version None)
Quarter: 2010Q2

REPORT INFORMATION
  Report Type: 
  Country: None (occurrence: None)
  Receive Date: 20100526
  Receipt Date: 20100526
  Transmission Date: 20101027
  Serious: Yes (Life-Threatening)
  Sender: FDA-Public Use
  Company Number: None

PATIENT
  Sex: Female
  Weight: 68.0396 kg

DRUGS (2)
  1. GABAPENTIN [Suspect]
     Indication: COMPLEX REGIONAL PAIN SYNDROME
     Dosage: 1 EVERY 8 HRS. BY MOUTH
     Dates: start: 20091210, end: 20091215
  2. GABAPENTIN [Suspect]
     Indication: COMPLEX REGIONAL PAIN SYNDROME
     Dosage: 1 EVERY 8 HRS. BY MOUTH
     Dates: start: 20091210, end: 20091215

REACTIONS (11)
  - ABDOMINAL PAIN UPPER [None]
  - AGITATION [None]
  - AMNESIA [None]
  - ANXIETY [None]
  - COORDINATION ABNORMAL [None]
  - DECREASED APPETITE [None]
  - EAR PAIN [None]
  - HEADACHE [None]
  - MEMORY IMPAIRMENT [None]
  - MOOD ALTERED [None]
  - SUICIDAL IDEATION [None]
